FAERS Safety Report 10101801 (Version 1)
Quarter: 2014Q2

REPORT INFORMATION
  Report Type: Report from Study
  Country: CN (occurrence: CN)
  Receive Date: 20140424
  Receipt Date: 20140424
  Transmission Date: 20141212
  Serious: Yes (Other)
  Sender: FDA-Public Use
  Company Number: CN-ROCHE-1387481

PATIENT
  Age: 62 Year
  Sex: Female
  Weight: 65 kg

DRUGS (5)
  1. HERCEPTIN [Suspect]
     Indication: INVASIVE DUCTAL BREAST CARCINOMA
     Dosage: DAY 1?FORM STRENGTH: 440MG/20ML
     Route: 041
     Dates: start: 20121128
  2. DOCETAXEL [Concomitant]
     Indication: INVASIVE DUCTAL BREAST CARCINOMA
     Dosage: DAY 2
     Route: 065
     Dates: start: 20121128
  3. CARBOPLATIN [Concomitant]
     Indication: INVASIVE DUCTAL BREAST CARCINOMA
     Dosage: DAY 2
     Route: 065
     Dates: start: 20121128
  4. PACLITAXEL [Concomitant]
     Indication: INVASIVE DUCTAL BREAST CARCINOMA
  5. UBENIMEX [Concomitant]
     Route: 048

REACTIONS (2)
  - Lymphadenopathy [Recovered/Resolved]
  - White blood cell count decreased [Recovered/Resolved]
